FAERS Safety Report 6678315-6 (Version None)
Quarter: 2010Q2

REPORT INFORMATION
  Report Type: 
  Country: None (occurrence: None)
  Receive Date: 20100413
  Receipt Date: 20100405
  Transmission Date: 20101027
  Serious: Yes (Hospitalization)
  Sender: FDA-Public Use
  Company Number: US-BIOGENIDEC-2010BI004931

PATIENT
  Age: 56 Year
  Sex: Female

DRUGS (5)
  1. TYSABRI [Suspect]
     Indication: MULTIPLE SCLEROSIS
     Route: 042
     Dates: start: 20071214, end: 20080410
  2. TYSABRI [Suspect]
     Route: 042
     Dates: start: 20080609
  3. CELEXA [Concomitant]
  4. TRAMADOL HCL [Concomitant]
  5. VICODIN [Concomitant]

REACTIONS (13)
  - BALANCE DISORDER [None]
  - HALLUCINATION, VISUAL [None]
  - HYPOTHYROIDISM [None]
  - MOBILITY DECREASED [None]
  - MUCOCUTANEOUS RASH [None]
  - MYOCARDIAL INFARCTION [None]
  - OEDEMA PERIPHERAL [None]
  - OVERDOSE [None]
  - PARANOIA [None]
  - STAPHYLOCOCCAL SKIN INFECTION [None]
  - SYNCOPE [None]
  - THORACIC VERTEBRAL FRACTURE [None]
  - TYPE 2 DIABETES MELLITUS [None]
